FAERS Safety Report 8407966-3 (Version None)
Quarter: 2012Q2

REPORT INFORMATION
  Report Type: 
  Country: None (occurrence: None)
  Receive Date: 20120604
  Receipt Date: 20120530
  Transmission Date: 20120825
  Serious: Yes (Hospitalization)
  Sender: FDA-Public Use
  Company Number: US-AMGEN-USASP2011021196

PATIENT
  Age: 90 Year
  Sex: Male
  Weight: 58.05 kg

DRUGS (14)
  1. VITAMIN B12                        /00056201/ [Concomitant]
  2. BICALUTAMIDE [Concomitant]
     Dosage: 50 MG, QD
  3. CARTEOLOL HYDROCHLORIDE [Concomitant]
     Dosage: UNK UNK, BID
     Route: 047
  4. VITAMIN B6 [Concomitant]
  5. FOLIC ACID [Concomitant]
  6. VITAMIN C                          /00008001/ [Concomitant]
  7. LUPRON [Concomitant]
     Dosage: 7.5 MG, UNK
     Dates: start: 20110311
  8. SOTALOL HCL [Concomitant]
     Dosage: 320 MG, QD
  9. SIMVASTATIN [Concomitant]
     Dosage: 20 MG, QD
  10. FISH OIL [Concomitant]
     Dosage: UNK UNK, QD
  11. VITAMIN D [Concomitant]
  12. XGEVA [Suspect]
     Indication: METASTASES TO BONE
     Dosage: 120 MG, Q4WK
     Route: 058
     Dates: start: 20110412, end: 20110412
  13. XGEVA [Suspect]
     Dosage: UNK, ONE TIME DOSE
     Route: 058
     Dates: start: 20110412, end: 20110412
  14. COUMADIN [Concomitant]

REACTIONS (15)
  - PYREXIA [None]
  - CONSTIPATION [None]
  - FATIGUE [None]
  - MALAISE [None]
  - MUSCULOSKELETAL STIFFNESS [None]
  - DRY MOUTH [None]
  - INTERNATIONAL NORMALISED RATIO INCREASED [None]
  - HAEMATURIA [None]
  - PAIN [None]
  - ANAEMIA [None]
  - HYPERSOMNIA [None]
  - HEADACHE [None]
  - BONE PAIN [None]
  - ASTHENIA [None]
  - HYPOPHAGIA [None]
